FAERS Safety Report 17770419 (Version 1)
Quarter: 2020Q2

REPORT INFORMATION
  Report Type: Spontaneous
  Country: US (occurrence: US)
  Receive Date: 20200512
  Receipt Date: 20200512
  Transmission Date: 20200714
  Serious: No
  Sender: FDA-Public Use
  Company Number: US-AMGEN-USASP2020075165

PATIENT
  Sex: Female

DRUGS (1)
  1. PROLIA [Suspect]
     Active Substance: DENOSUMAB
     Indication: OSTEOPOROSIS
     Dosage: UNK
     Route: 065

REACTIONS (9)
  - Bone disorder [Unknown]
  - Fatigue [Unknown]
  - Drug hypersensitivity [Recovered/Resolved]
  - Pain in extremity [Unknown]
  - Muscle spasms [Unknown]
  - Dyspnoea [Recovered/Resolved]
  - Blood calcium increased [Unknown]
  - Chest discomfort [Unknown]
  - Gastrointestinal disorder [Not Recovered/Not Resolved]
